FAERS Safety Report 7815328-2 (Version None)
Quarter: 2011Q4

REPORT INFORMATION
  Report Type: 
  Country: None (occurrence: None)
  Receive Date: 20111014
  Receipt Date: 20111013
  Transmission Date: 20120403
  Serious: No
  Sender: FDA-Public Use
  Company Number: US-PFIZER INC-2011245673

PATIENT
  Sex: Male
  Weight: 74 kg

DRUGS (7)
  1. MOBIC [Concomitant]
     Dosage: UNK
  2. CHANTIX [Suspect]
     Indication: SMOKING CESSATION THERAPY
     Dosage: UNK
     Route: 048
     Dates: start: 20090101, end: 20090101
  3. CHANTIX [Suspect]
     Dosage: 0.5 MG, 1X/DAY
     Dates: start: 20110901, end: 20110901
  4. CHANTIX [Suspect]
     Dosage: 1 MG, 2X/DAY
     Dates: start: 20110901, end: 20110901
  5. GABAPENTIN [Concomitant]
     Dosage: UNK
  6. FLEXERIL [Concomitant]
     Dosage: UNK
  7. MORPHINE [Concomitant]
     Dosage: UNK

REACTIONS (2)
  - ABNORMAL DREAMS [None]
  - OEDEMA PERIPHERAL [None]
